FAERS Safety Report 4282405-5 (Version None)
Quarter: 2004Q1

REPORT INFORMATION
  Report Type: 
  Country: None (occurrence: None)
  Receive Date: 20040116
  Receipt Date: 20030415
  Transmission Date: 20041129
  Serious: No
  Sender: FDA-Public Use
  Company Number: 03P-163-0216595-00

PATIENT
  Age: 62 Year
  Sex: Female

DRUGS (5)
  1. MERIDIA [Suspect]
     Indication: OBESITY
     Dates: start: 20020801, end: 20030411
  2. CETIRIZINE HYDROCHLORIDE [Concomitant]
  3. SUMATRIPTAN SUCCINATE [Concomitant]
  4. MOMETASONE FUROATE [Concomitant]
  5. AFLEX [Concomitant]

REACTIONS (2)
  - DIZZINESS [None]
  - SUPRAVENTRICULAR TACHYCARDIA [None]
